FAERS Safety Report 9012958 (Version 1)
Quarter: 2013Q1

REPORT INFORMATION
  Report Type: Spontaneous
  Country: FR (occurrence: FR)
  Receive Date: 20130114
  Receipt Date: 20130114
  Transmission Date: 20140127
  Serious: Yes (Hospitalization)
  Sender: FDA-Public Use
  Company Number: FR-GLAXOSMITHKLINE-B0857452A

PATIENT
  Age: 88 Year
  Sex: Male

DRUGS (4)
  1. DEROXAT [Suspect]
     Indication: DEPRESSION
     Dosage: 20MG PER DAY
     Route: 048
     Dates: start: 20120731, end: 20120810
  2. KARDEGIC [Concomitant]
     Dosage: 75MG PER DAY
     Route: 065
  3. MODOPAR [Concomitant]
     Dosage: 125MG THREE TIMES PER DAY
     Route: 065
  4. DOLIPRANE [Concomitant]
     Dosage: 1G THREE TIMES PER DAY
     Route: 065

REACTIONS (3)
  - Hepatitis cholestatic [Recovered/Resolved]
  - Jaundice [Recovered/Resolved]
  - Hepatocellular injury [Recovered/Resolved]
